FAERS Safety Report 12586655 (Version 1)
Quarter: 2016Q3

REPORT INFORMATION
  Report Type: Spontaneous
  Country: US (occurrence: US)
  Receive Date: 20160725
  Receipt Date: 20160725
  Transmission Date: 20161109
  Serious: No
  Sender: FDA-Public Use
  Company Number: US-PFIZER INC-2016337865

PATIENT
  Sex: Male

DRUGS (2)
  1. ADVIL [Suspect]
     Active Substance: IBUPROFEN
     Dosage: TAKEN MORE THAN 5 OR 6 IN 24 HOUR PERIOD
     Dates: start: 20160708, end: 20160708
  2. ADVIL [Suspect]
     Active Substance: IBUPROFEN
     Dosage: UNK
     Dates: start: 2016, end: 20160707

REACTIONS (5)
  - Intentional product use issue [Unknown]
  - Headache [Unknown]
  - Insomnia [Unknown]
  - Back pain [Unknown]
  - Product use issue [Unknown]

NARRATIVE: CASE EVENT DATE: 2016
